FAERS Safety Report 8516458-2 (Version None)
Quarter: 2012Q3

REPORT INFORMATION
  Report Type: 
  Country: None (occurrence: None)
  Receive Date: 20120718
  Receipt Date: 20120712
  Transmission Date: 20120928
  Serious: No
  Sender: FDA-Public Use
  Company Number: US-PFIZER INC-2012168436

PATIENT
  Sex: Female
  Weight: 61.224 kg

DRUGS (6)
  1. LYRICA [Suspect]
     Indication: NEURALGIA
     Dosage: 200 MG, 2X/DAY
     Route: 048
     Dates: start: 20120706
  2. KEPPRA [Concomitant]
     Indication: COMPLEX PARTIAL SEIZURES
     Dosage: 500 MG, 4X/DAY
  3. LYRICA [Suspect]
     Indication: FIBROMYALGIA
  4. CYCLOBENZAPRINE [Concomitant]
     Dosage: 10 MG, AS NEEDED
  5. PROMETHAZINE [Concomitant]
     Indication: NAUSEA
     Dosage: UNK, AS NEEDED
  6. HYDROMORPHONE [Concomitant]
     Dosage: UNK

REACTIONS (9)
  - ARTHRALGIA [None]
  - DIZZINESS [None]
  - DISTURBANCE IN ATTENTION [None]
  - TREMOR [None]
  - MUSCULOSKELETAL STIFFNESS [None]
  - VEIN DISORDER [None]
  - MIDDLE INSOMNIA [None]
  - DRY MOUTH [None]
  - THIRST [None]
